FAERS Safety Report 10346464 (Version 1)
Quarter: 2014Q3

REPORT INFORMATION
  Report Type: Spontaneous
  Country: US (occurrence: US)
  Receive Date: 20140729
  Receipt Date: 20140729
  Transmission Date: 20150326
  Serious: No
  Sender: FDA-Public Use
  Company Number: US-009507513-1407USA002832

PATIENT
  Sex: Female

DRUGS (1)
  1. IMPLANON [Suspect]
     Active Substance: ETONOGESTREL
     Dosage: DURATION: 3 YEARS
     Route: 059

REACTIONS (5)
  - Adverse event [Unknown]
  - Weight increased [Unknown]
  - Hot flush [Unknown]
  - Dermatitis [Unknown]
  - Irritability [Unknown]
